FAERS Safety Report 14768249 (Version 2)
Quarter: 2018Q2

REPORT INFORMATION
  Report Type: Spontaneous
  Country: US (occurrence: US)
  Receive Date: 20180417
  Receipt Date: 20180420
  Transmission Date: 20180711
  Serious: No
  Sender: FDA-Public Use
  Company Number: US-BEH-2018089722

PATIENT
  Age: 45 Year
  Sex: Female

DRUGS (30)
  1. HIZENTRA [Suspect]
     Active Substance: HUMAN IMMUNOGLOBULIN G
     Dosage: 75 ML, QW
     Route: 058
     Dates: start: 20170713
  2. LIOTHYRONINE SODIUM. [Concomitant]
     Active Substance: LIOTHYRONINE SODIUM
     Dosage: UNK
     Route: 065
     Dates: start: 20161129, end: 20170707
  3. VITAMIN E                          /00110501/ [Concomitant]
     Active Substance: TOCOPHEROL
     Dosage: 400 UNITS, UNK, CAP
     Route: 065
     Dates: start: 20170707
  4. ZYRTEC [Concomitant]
     Active Substance: CETIRIZINE HYDROCHLORIDE
     Dosage: 10 MG, UNK, TAB
     Route: 065
     Dates: start: 20161129
  5. CLARITIN [Concomitant]
     Active Substance: LORATADINE
     Dosage: 10 MG, UNK, TAB
     Route: 065
     Dates: start: 20161129
  6. LEVOTHYROXIN [Concomitant]
     Active Substance: LEVOTHYROXINE
     Dosage: 150 ?G, UNK, TAB
     Route: 065
     Dates: start: 20161129
  7. MAGNESIUM [Concomitant]
     Active Substance: MAGNESIUM
     Dosage: 27 MG, UNK, TAB
     Route: 065
  8. VITAMIN B12 [Concomitant]
     Active Substance: CYANOCOBALAMIN
     Dosage: UNK
     Route: 065
     Dates: start: 20161129
  9. HYDROXYZINE HCL [Concomitant]
     Active Substance: HYDROXYZINE HYDROCHLORIDE
     Dosage: 10 MG, UNK, TAB
     Route: 065
     Dates: start: 20170921
  10. IMURAN [Concomitant]
     Active Substance: AZATHIOPRINE
     Dosage: 50 MG, UNK, TAB
     Route: 065
     Dates: start: 20161129
  11. LIOTHYRONINE SODIUM. [Concomitant]
     Active Substance: LIOTHYRONINE SODIUM
     Dosage: 5 ?G, UNK, TAB
     Route: 065
     Dates: start: 20170707
  12. POTASSIUM [Concomitant]
     Active Substance: POTASSIUM
     Dosage: 75 MG, UNK, TAB
     Route: 065
     Dates: start: 20161129
  13. VITAMIN B COMPLEX [Concomitant]
     Active Substance: CYANOCOBALAMIN\DEXPANTHENOL\NIACINAMIDE\PYRIDOXINE HYDROCHLORIDE\RIBOFLAVIN 5^-PHOSPHATE SODIUM\THIAMINE HYDROCHLORIDE\VITAMIN B COMPLEX
     Dosage: UNK, TAB
     Route: 065
     Dates: start: 20161129
  14. HIZENTRA [Suspect]
     Active Substance: HUMAN IMMUNOGLOBULIN G
     Dosage: UNK
     Route: 058
  15. ATENOLOL. [Concomitant]
     Active Substance: ATENOLOL
     Dosage: 50 MG, UNK, TAB
     Route: 065
     Dates: start: 20161129
  16. TRAZODONE [Concomitant]
     Active Substance: TRAZODONE HYDROCHLORIDE
     Dosage: 50 MG, UNK, TAB
     Route: 065
     Dates: start: 20161129
  17. HIZENTRA [Suspect]
     Active Substance: HUMAN IMMUNOGLOBULIN G
     Dosage: UNK
     Route: 058
  18. LYRICA [Concomitant]
     Active Substance: PREGABALIN
     Dosage: 25 MG, UNK, CAP
     Route: 065
     Dates: start: 20161129
  19. SINGULAIR [Concomitant]
     Active Substance: MONTELUKAST SODIUM
     Dosage: 4 MG, UNK, GRA
     Route: 065
     Dates: start: 20161129
  20. VENTOLIN HFA [Concomitant]
     Active Substance: ALBUTEROL SULFATE
     Dosage: UNK
     Route: 065
     Dates: start: 20161129
  21. ELIQUIS [Concomitant]
     Active Substance: APIXABAN
     Dosage: 2.5 MG, UNK, TAB
     Route: 065
     Dates: start: 20170707
  22. SEROQUEL [Concomitant]
     Active Substance: QUETIAPINE FUMARATE
     Dosage: 100 MG, UNK, TAB
     Route: 065
     Dates: start: 20161129
  23. XARELTO [Concomitant]
     Active Substance: RIVAROXABAN
     Dosage: 10 MG, UNK, TAB
     Route: 065
     Dates: start: 20161129, end: 20170707
  24. VITAMIN D                          /00107901/ [Concomitant]
     Active Substance: ERGOCALCIFEROL
     Dosage: 50000 IU, UNK, CAP
     Route: 065
     Dates: start: 20170707
  25. VITAMIN C [Concomitant]
     Active Substance: ASCORBIC ACID
     Dosage: 500 MG,TAB
     Route: 065
     Dates: start: 20161129
  26. HIZENTRA [Suspect]
     Active Substance: HUMAN IMMUNOGLOBULIN G
     Indication: IMMUNODEFICIENCY
     Dosage: UNK
     Route: 058
  27. ALLEGRA-D                          /01367401/ [Concomitant]
     Dosage: UNK, TAB 12 HOUR
     Route: 065
     Dates: start: 20161129
  28. BUMEX [Concomitant]
     Active Substance: BUMETANIDE
     Dosage: 0.5 MG, UNK, TAB
     Route: 065
     Dates: start: 20161129
  29. VIIBRYD [Concomitant]
     Active Substance: VILAZODONE HYDROCHLORIDE
     Dosage: 10 MG, UNK, TAB
     Route: 065
     Dates: start: 20161129
  30. WELLBUTRIN [Concomitant]
     Active Substance: BUPROPION HYDROCHLORIDE
     Dosage: 150 MG, UNK, TAB XL
     Route: 065
     Dates: start: 20161129

REACTIONS (1)
  - No adverse event [Unknown]

NARRATIVE: CASE EVENT DATE: 201803
